FAERS Safety Report 5101965-5 (Version None)
Quarter: 2006Q3

REPORT INFORMATION
  Report Type: 
  Country: None (occurrence: None)
  Receive Date: 20060731
  Receipt Date: 20060511
  Transmission Date: 20061208
  Serious: No
  Sender: FDA-Public Use
  Company Number: 2006PV013689

PATIENT
  Age: 47 Year
  Sex: Male
  Weight: 204.1187 kg

DRUGS (10)
  1. BYETTA [Suspect]
     Indication: DIABETES MELLITUS NON-INSULIN-DEPENDENT
     Dosage: SEE IMAGE
     Dates: start: 20050601, end: 20050101
  2. BYETTA [Suspect]
     Indication: DIABETES MELLITUS NON-INSULIN-DEPENDENT
     Dosage: SEE IMAGE
     Dates: start: 20050101
  3. HUMALOG [Concomitant]
  4. GLUCOPHAGE [Concomitant]
  5. ACTOS /USA/ [Concomitant]
  6. NEXIUM [Concomitant]
  7. NEURONTIN [Concomitant]
  8. XANAX [Concomitant]
  9. ATENOLOL [Concomitant]
  10. ANTI-DEPRESSNAT PATCH [Concomitant]

REACTIONS (3)
  - BLOOD GLUCOSE INCREASED [None]
  - FEELING ABNORMAL [None]
  - WEIGHT DECREASED [None]
